FAERS Safety Report 14859712 (Version 5)
Quarter: 2021Q1

REPORT INFORMATION
  Report Type: Spontaneous
  Country: US (occurrence: US)
  Receive Date: 20180508
  Receipt Date: 20210326
  Transmission Date: 20210419
  Serious: Yes (Other)
  Sender: FDA-Public Use
  Company Number: US-PFIZER INC-2018186485

PATIENT
  Age: 73 Year
  Sex: Female

DRUGS (3)
  1. XELJANZ XR [Suspect]
     Active Substance: TOFACITINIB CITRATE
     Indication: ARTHRITIS
     Dosage: 11 MG, UNK
  2. XELJANZ XR [Suspect]
     Active Substance: TOFACITINIB CITRATE
     Dosage: UNK
     Dates: start: 201611
  3. XELJANZ XR [Suspect]
     Active Substance: TOFACITINIB CITRATE
     Indication: RHEUMATOID ARTHRITIS
     Dosage: 20 MG, 1X/DAY (20 MG ONCE DAILY)
     Dates: start: 201611

REACTIONS (5)
  - Bone pain [Not Recovered/Not Resolved]
  - Respiratory tract infection [Recovered/Resolved]
  - Illness [Recovered/Resolved]
  - Pharyngeal mass [Unknown]
  - Visual impairment [Unknown]

NARRATIVE: CASE EVENT DATE: 201611
